FAERS Safety Report 17718196 (Version 4)
Quarter: 2020Q4

REPORT INFORMATION
  Report Type: Report from Study
  Country: None (occurrence: NL)
  Receive Date: 20200428
  Receipt Date: 20201222
  Transmission Date: 20210113
  Serious: Yes (Hospitalization)
  Sender: FDA-Public Use
  Company Number: NL-ABBVIE-18S-114-2470530-00

PATIENT
  Sex: Male
  Weight: 72 kg

DRUGS (11)
  1. DUODOPA [Suspect]
     Active Substance: CARBIDOPA\LEVODOPA
     Dosage: MD: 7.0 CD: 2.9 ED: 3.0 CND: 2.8 ED: 1.5,REMAINS AT 24 HOURS
     Route: 050
  2. MAGNESIUM [Concomitant]
     Active Substance: MAGNESIUM
     Indication: SLEEP DISORDER
  3. MIRTAZAPINE. [Concomitant]
     Active Substance: MIRTAZAPINE
     Indication: PRODUCT USED FOR UNKNOWN INDICATION
  4. DUODOPA [Suspect]
     Active Substance: CARBIDOPA\LEVODOPA
     Dosage: DAY: MD: 7.0ML, CD: 2.9 ML, ED: 3.0 ML, NIGHT CD: 2.6ML, ED: 1.5ML: 24 HOUR ADMINISTRATION
     Route: 050
  5. DUODOPA [Suspect]
     Active Substance: CARBIDOPA\LEVODOPA
     Dosage: MD 7.0 ML; CD 3.0 ML/H; ED 3.0 ML; CND 2.8 ML/H; END 1.5 ML,REMAINS AT 24 HOURS
     Route: 050
  6. MOVICOLON [Concomitant]
     Active Substance: POLYETHYLENE GLYCOL 3350\POTASSIUM CHLORIDE\SODIUM BICARBONATE\SODIUM CHLORIDE
     Indication: ABNORMAL FAECES
     Dosage: WHEN NEEDED
  7. MELATONIN [Concomitant]
     Active Substance: MELATONIN
     Indication: SLEEP DISORDER
  8. DUODOPA [Suspect]
     Active Substance: CARBIDOPA\LEVODOPA
     Indication: PARKINSON^S DISEASE
     Dosage: MD: 7.0, CD: 2.9, ED: 2.6, CND: 2.6, END: 1.5
     Route: 050
     Dates: start: 20150129
  9. MOVICOLON [Concomitant]
     Active Substance: POLYETHYLENE GLYCOL 3350\POTASSIUM CHLORIDE\SODIUM BICARBONATE\SODIUM CHLORIDE
     Indication: CONSTIPATION
  10. SUDOCREM [Concomitant]
     Active Substance: LANOLIN\ZINC OXIDE
     Indication: STOMA SITE ERYTHEMA
  11. MAGNESIUM [Concomitant]
     Active Substance: MAGNESIUM
     Indication: ABNORMAL FAECES

REACTIONS (42)
  - Middle insomnia [Recovered/Resolved]
  - Dysstasia [Not Recovered/Not Resolved]
  - Balance disorder [Not Recovered/Not Resolved]
  - Malaise [Not Recovered/Not Resolved]
  - Hallucination [Recovered/Resolved]
  - Confusional state [Recovered/Resolved]
  - On and off phenomenon [Not Recovered/Not Resolved]
  - Parkinson^s disease [Recovered/Resolved]
  - Parkinson^s disease [Recovering/Resolving]
  - Pneumonia [Recovered/Resolved]
  - Fatigue [Not Recovered/Not Resolved]
  - Bradykinesia [Not Recovered/Not Resolved]
  - Dyskinesia [Recovered/Resolved]
  - Stoma site discharge [Not Recovered/Not Resolved]
  - Cognitive disorder [Recovering/Resolving]
  - Tension [Unknown]
  - Daydreaming [Not Recovered/Not Resolved]
  - Gait disturbance [Not Recovered/Not Resolved]
  - Stoma site discharge [Recovered/Resolved]
  - Patient elopement [Recovered/Resolved]
  - Therapeutic product effect incomplete [Recovered/Resolved]
  - Stoma site erythema [Unknown]
  - Unevaluable event [Not Recovered/Not Resolved]
  - Freezing phenomenon [Not Recovered/Not Resolved]
  - Dyskinesia [Recovering/Resolving]
  - Medical device discomfort [Unknown]
  - Hernia [Not Recovered/Not Resolved]
  - Pancreatitis [Recovered/Resolved]
  - Musculoskeletal stiffness [Not Recovered/Not Resolved]
  - Sleep disorder due to general medical condition, insomnia type [Recovering/Resolving]
  - Muscle spasms [Not Recovered/Not Resolved]
  - Nausea [Not Recovered/Not Resolved]
  - Loss of personal independence in daily activities [Unknown]
  - Parkinsonian gait [Unknown]
  - Nightmare [Not Recovered/Not Resolved]
  - Freezing phenomenon [Recovered/Resolved]
  - Fluid intake reduced [Not Recovered/Not Resolved]
  - Peripheral coldness [Not Recovered/Not Resolved]
  - Memory impairment [Not Recovered/Not Resolved]
  - Muscle rigidity [Not Recovered/Not Resolved]
  - Abnormal dreams [Not Recovered/Not Resolved]
  - Dizziness [Not Recovered/Not Resolved]

NARRATIVE: CASE EVENT DATE: 2019
